FAERS Safety Report 6578528-8 (Version None)
Quarter: 2010Q1

REPORT INFORMATION
  Report Type: 
  Country: None (occurrence: None)
  Receive Date: 20100211
  Receipt Date: 20100208
  Transmission Date: 20100710
  Serious: Yes (Other)
  Sender: FDA-Public Use
  Company Number: US-B.I. PHARMACEUTICALS,INC./RIDGEFIELD-2010-BP-01620BP

PATIENT
  Sex: Male

DRUGS (4)
  1. SPIRIVA [Suspect]
     Indication: CHRONIC OBSTRUCTIVE PULMONARY DISEASE
     Dosage: 18 MCG
     Route: 055
     Dates: start: 20100122, end: 20100127
  2. FOLIC ACID [Concomitant]
     Indication: FATIGUE
  3. THIAMINE [Concomitant]
     Indication: FATIGUE
  4. LISINOPRIL [Concomitant]
     Indication: HYPERTENSION

REACTIONS (2)
  - ORTHOPNOEA [None]
  - VISUAL IMPAIRMENT [None]
